FAERS Safety Report 12847706 (Version 1)
Quarter: 2016Q4

REPORT INFORMATION
  Report Type: Spontaneous
  Country: ES (occurrence: ES)
  Receive Date: 20161014
  Receipt Date: 20161014
  Transmission Date: 20170207
  Serious: Yes (Other)
  Sender: FDA-Public Use
  Company Number: ALCN2016ES006948

PATIENT
  Age: 7 Year
  Sex: Female
  Weight: 24.5 kg

DRUGS (1)
  1. CYCLOPENTOLATE HCL [Suspect]
     Active Substance: CYCLOPENTOLATE HYDROCHLORIDE
     Indication: MYDRIASIS
     Dosage: UNK
     Route: 047
     Dates: start: 20160905, end: 20160906

REACTIONS (2)
  - Ataxia [Recovered/Resolved]
  - Confusional state [Recovered/Resolved]

NARRATIVE: CASE EVENT DATE: 20160906
